FAERS Safety Report 12704839 (Version 1)
Quarter: 2016Q3

REPORT INFORMATION
  Report Type: Spontaneous
  Country: GB (occurrence: GB)
  Receive Date: 20160831
  Receipt Date: 20160831
  Transmission Date: 20161109
  Serious: Yes (Other)
  Sender: FDA-Public Use
  Company Number: GB-GILEAD-2016-0230611

PATIENT
  Age: 34 Year
  Sex: Male

DRUGS (8)
  1. RAMIPRIL. [Concomitant]
     Active Substance: RAMIPRIL
  2. OMEPRAZOLE. [Concomitant]
     Active Substance: OMEPRAZOLE
  3. PROCYCLIDINE [Concomitant]
     Active Substance: PROCYCLIDINE
  4. PROPRANOLOL [Concomitant]
     Active Substance: PROPRANOLOL\PROPRANOLOL HYDROCHLORIDE
  5. LACTULOSE. [Concomitant]
     Active Substance: LACTULOSE
  6. CLOZAPINE. [Concomitant]
     Active Substance: CLOZAPINE
  7. HARVONI [Suspect]
     Active Substance: LEDIPASVIR\SOFOSBUVIR
     Indication: CHRONIC HEPATITIS
     Dosage: 1 DF, UNK
     Route: 048
     Dates: start: 201607
  8. OXYBUTYNIN [Concomitant]
     Active Substance: OXYBUTYNIN

REACTIONS (1)
  - Depressed mood [Unknown]
